FAERS Safety Report 10251859 (Version 2)
Quarter: 2014Q2

REPORT INFORMATION
  Report Type: Spontaneous
  Country: US (occurrence: US)
  Receive Date: 20140623
  Receipt Date: 20140623
  Transmission Date: 20141212
  Serious: Yes (Disabling)
  Sender: FDA-Public Use
  Company Number: US-BRISTOL-MYERS SQUIBB COMPANY-20729075

PATIENT
  Age: 74 Year
  Sex: Male

DRUGS (3)
  1. YERVOY [Suspect]
     Indication: MALIGNANT MELANOMA
     Dosage: EVERY 3 WEEKS X 4WEEKS
     Route: 042
     Dates: start: 20140220, end: 20140320
  2. ELIQUIS [Concomitant]
  3. NAMENDA [Concomitant]
     Dosage: XR,1DF: 28 UNIT:NOS

REACTIONS (4)
  - Diarrhoea [Recovered/Resolved]
  - Dehydration [Unknown]
  - Atrial fibrillation [Unknown]
  - Weight decreased [Unknown]
